FAERS Safety Report 6384355-7 (Version None)
Quarter: 2009Q3

REPORT INFORMATION
  Report Type: 
  Country: None (occurrence: None)
  Receive Date: 20090929
  Receipt Date: 20090924
  Transmission Date: 20100115
  Serious: Yes (Death)
  Sender: FDA-Public Use
  Company Number: 2008SP018182

PATIENT
  Age: 66 Year
  Sex: Female

DRUGS (3)
  1. TEMODAL [Suspect]
     Indication: GLIOBLASTOMA
     Dosage: 75 MG/M2;QD;PO
     Route: 048
     Dates: start: 20070104, end: 20070212
  2. ZOFRAN (CON.) [Concomitant]
  3. DEXAMETHASONE (CON.) [Concomitant]

REACTIONS (1)
  - PULMONARY EMBOLISM [None]
